FAERS Safety Report 5500215-5 (Version None)
Quarter: 2007Q4

REPORT INFORMATION
  Report Type: 
  Country: None (occurrence: None)
  Receive Date: 20071025
  Receipt Date: 20071011
  Transmission Date: 20080405
  Serious: No
  Sender: FDA-Public Use
  Company Number: TPA2007A02086

PATIENT
  Age: 80 Year
  Sex: Male
  Weight: 81.6475 kg

DRUGS (7)
  1. ROZEREM [Suspect]
     Indication: INITIAL INSOMNIA
     Dosage: 8 MG, QHS, PER ORAL; 12 MG, QHS, PER ORAL; PER ORAL
     Route: 048
     Dates: start: 20071007, end: 20071009
  2. ROZEREM [Suspect]
     Indication: INITIAL INSOMNIA
     Dosage: 8 MG, QHS, PER ORAL; 12 MG, QHS, PER ORAL; PER ORAL
     Route: 048
     Dates: start: 20071010, end: 20071010
  3. PRILOSEC [Suspect]
  4. BUPROPION HCL [Concomitant]
  5. AMITRIPTYLINE HCL [Concomitant]
  6. DILTIAZEM [Concomitant]
  7. AMBIEN [Concomitant]

REACTIONS (4)
  - CONDITION AGGRAVATED [None]
  - DRUG INEFFECTIVE [None]
  - INSOMNIA [None]
  - PSYCHOMOTOR HYPERACTIVITY [None]
